FAERS Safety Report 8026972 (Version 2)
Quarter: 2012Q4

REPORT INFORMATION
  Report Type: Report from Study
  Country: US (occurrence: US)
  Receive Date: 20110708
  Receipt Date: 20121119
  Transmission Date: 20130627
  Serious: Yes (Other)
  Sender: FDA-Public Use
  Company Number: US-ABBOTT-11P-163-0835678-00

PATIENT
  Age: 38 Year
  Sex: Female
  Weight: 83.99 kg

DRUGS (3)
  1. LUPRON DEPOT 3.75 MG [Suspect]
     Indication: ENDOMETRIOSIS
     Dates: start: 201102, end: 20110608
  2. TOPAMAX [Concomitant]
     Indication: MIGRAINE
     Dosage: x4
  3. MAXALT [Concomitant]
     Indication: MIGRAINE
     Dosage: x2

REACTIONS (6)
  - Migraine [Unknown]
  - Retching [Unknown]
  - Blood pressure increased [Unknown]
  - Headache [Unknown]
  - Unevaluable event [Unknown]
  - Hot flush [Not Recovered/Not Resolved]
